FAERS Safety Report 20082916 (Version 2)
Quarter: 2022Q1

REPORT INFORMATION
  Report Type: Spontaneous
  Country: FI (occurrence: FI)
  Receive Date: 20211117
  Receipt Date: 20220201
  Transmission Date: 20220423
  Serious: Yes (Other)
  Sender: FDA-Public Use
  Company Number: FI-NAPPMUNDI-GBR-2021-0092475

PATIENT
  Sex: Male

DRUGS (4)
  1. NORSPAN [Suspect]
     Active Substance: BUPRENORPHINE
     Indication: Product used for unknown indication
     Dosage: 30 MCG, Q1H
     Route: 062
  2. NORSPAN [Suspect]
     Active Substance: BUPRENORPHINE
     Dosage: 30 MCG, Q1H
     Route: 062
  3. PREGABALIN [Concomitant]
     Active Substance: PREGABALIN
     Dosage: 5 DF, DAILY
     Route: 065
  4. IBUPROFEN [Concomitant]
     Active Substance: IBUPROFEN
     Dosage: 800 MG, UNK (OCCASIONALLY)
     Route: 065

REACTIONS (7)
  - Arrhythmia [Unknown]
  - Chills [Unknown]
  - Product adhesion issue [Unknown]
  - Drug interaction [Unknown]
  - Blister [Unknown]
  - Hyperhidrosis [Unknown]
  - Nausea [Unknown]
